FAERS Safety Report 21313613 (Version 1)
Quarter: 2022Q3

REPORT INFORMATION
  Report Type: Spontaneous
  Country: JP (occurrence: JP)
  Receive Date: 20220909
  Receipt Date: 20220909
  Transmission Date: 20221027
  Serious: Yes (Hospitalization, Other)
  Sender: FDA-Public Use
  Company Number: JP-GLAXOSMITHKLINE-JP2022JPN128440

PATIENT

DRUGS (12)
  1. SERETIDE [Suspect]
     Active Substance: FLUTICASONE PROPIONATE\SALMETEROL XINAFOATE
     Indication: Asthma
     Dosage: 250 ?G/DAY
     Route: 055
  2. CYCLOPHOSPHAMIDE [Suspect]
     Active Substance: CYCLOPHOSPHAMIDE
     Dosage: 100 MG/DAY
  3. CLOPIDOGREL BISULFATE [Concomitant]
     Active Substance: CLOPIDOGREL BISULFATE
     Dosage: 75 MG/DAY
  4. AZILSARTAN KAMEDOXOMIL [Concomitant]
     Active Substance: AZILSARTAN KAMEDOXOMIL
     Dosage: 40 MG/DAY
  5. AMLODIPINE BESYLATE [Concomitant]
     Active Substance: AMLODIPINE BESYLATE
     Dosage: 5 MG/DAY
  6. FENOFIBRATE [Concomitant]
     Active Substance: FENOFIBRATE
     Dosage: 160 MG/DAY
  7. VONOPRAZAN FUMARATE [Concomitant]
     Active Substance: VONOPRAZAN FUMARATE
     Dosage: 10 MG/DAY
  8. METFORMIN HYDROCHLORIDE [Concomitant]
     Active Substance: METFORMIN HYDROCHLORIDE
     Dosage: 1500 MG/DAY
  9. SITAGLIPTIN PHOSPHATE [Concomitant]
     Active Substance: SITAGLIPTIN PHOSPHATE
     Dosage: 100 MG/DAY
  10. VOGLIBOSE [Concomitant]
     Active Substance: VOGLIBOSE
     Dosage: 0.6 MG/DAY
  11. METHYLCOBALAMIN [Concomitant]
     Active Substance: METHYLCOBALAMIN
     Dosage: 1500 ?G/DAY
  12. INSULIN DEGLUDEC (GENETICAL RECOMBINATION) [Concomitant]
     Dosage: 10 UNITS IN THE MORNING

REACTIONS (18)
  - Cerebral infarction [Unknown]
  - Eosinophilic granulomatosis with polyangiitis [Unknown]
  - Facial paralysis [Unknown]
  - Eosinophil count increased [Recovered/Resolved]
  - Myopericarditis [Unknown]
  - Cardiac ventricular thrombosis [Recovered/Resolved]
  - Myocarditis [Unknown]
  - Myocardial oedema [Unknown]
  - Cardiomyopathy [Unknown]
  - Dyslalia [Unknown]
  - Muscular weakness [Unknown]
  - Purpura [Unknown]
  - Eyelid ptosis [Unknown]
  - Diplopia [Unknown]
  - Pleural effusion [Unknown]
  - White blood cell count decreased [Unknown]
  - Myocardial fibrosis [Unknown]
  - Product use issue [Unknown]
